FAERS Safety Report 8306332 (Version 3)
Quarter: 2014Q4

REPORT INFORMATION
  Report Type: Report from Study
  Country: US (occurrence: US)
  Receive Date: 20111222
  Receipt Date: 20141212
  Transmission Date: 20150529
  Serious: Yes (Hospitalization)
  Sender: FDA-Public Use
  Company Number: US-BIOGENIDEC-2011BI047555

PATIENT
  Sex: Female

DRUGS (3)
  1. AVONEX [Suspect]
     Active Substance: INTERFERON BETA-1A
     Indication: MULTIPLE SCLEROSIS
     Route: 030
     Dates: start: 19990101
  2. PREMARIN [Concomitant]
     Active Substance: ESTROGENS, CONJUGATED
  3. AVONEX [Suspect]
     Active Substance: INTERFERON BETA-1A
     Indication: MULTIPLE SCLEROSIS

REACTIONS (9)
  - Fatigue [Not Recovered/Not Resolved]
  - Hysterectomy [Recovered/Resolved]
  - Multiple sclerosis relapse [Recovered/Resolved]
  - Procedural anxiety [Not Recovered/Not Resolved]
  - Hypertension [Recovered/Resolved]
  - Stress [Unknown]
  - Hormone level abnormal [Not Recovered/Not Resolved]
  - Dizziness [Not Recovered/Not Resolved]
  - Neck pain [Not Recovered/Not Resolved]

NARRATIVE: CASE EVENT DATE: 2004
